FAERS Safety Report 25426620 (Version 2)
Quarter: 2025Q2

REPORT INFORMATION
  Report Type: Spontaneous
  Country: GR (occurrence: GR)
  Receive Date: 20250612
  Receipt Date: 20250625
  Transmission Date: 20250717
  Serious: Yes (Hospitalization)
  Sender: TEVA
  Company Number: GR-TEVA-VS-3338895

PATIENT
  Age: 20 Year
  Sex: Male

DRUGS (3)
  1. LACOSAMIDE [Suspect]
     Active Substance: LACOSAMIDE
     Indication: Product used for unknown indication
     Dosage: 50 MG ?2
     Route: 065
  2. LEVOFLOXACIN [Suspect]
     Active Substance: LEVOFLOXACIN
     Indication: Pneumonia
     Route: 048
  3. ESOMEPRAZOLE [Concomitant]
     Active Substance: ESOMEPRAZOLE
     Indication: Product used for unknown indication
     Dosage: 10 MG ?1; SACHET
     Route: 065

REACTIONS (6)
  - Febrile neutropenia [Unknown]
  - Neutropenia [Recovering/Resolving]
  - Clostridium difficile colitis [Recovering/Resolving]
  - Clostridium difficile infection [Recovering/Resolving]
  - Thrombocytopenia [Recovering/Resolving]
  - Pneumobilia [Recovered/Resolved]
